FAERS Safety Report 10262184 (Version 1)
Quarter: 2014Q2

REPORT INFORMATION
  Report Type: Spontaneous
  Country: US (occurrence: None)
  Receive Date: 20140624
  Receipt Date: 20140624
  Transmission Date: 20141212
  Serious: Yes (Hospitalization)
  Sender: FDA-Public Use
  Company Number: None

PATIENT
  Age: 66 Year
  Sex: Female
  Weight: 54.89 kg

DRUGS (16)
  1. LENALIDOMIDE [Suspect]
     Indication: PLASMA CELL MYELOMA
     Dosage: LENALIDOMIDE D1-21, DEXAMETHASONE D1, 8, 15
     Dates: start: 20140206, end: 20140617
  2. PANOBINOSTAT [Suspect]
     Dosage: PO DAYS 1, 3, 5, 15, 17, 19
     Route: 048
     Dates: start: 20140206, end: 20140617
  3. FREESTYLE LITE STRIPS [Concomitant]
  4. PANOBINOSTAT 20 MG CAPSULE [Concomitant]
  5. MORPHINE 30 MG CAPSULE, EXTEND. RELEASE PELLETS [Concomitant]
  6. NOVOLIN R 100 UNIT/ML SOLUTION [Concomitant]
  7. SURE COMFORT LANCETS 30 GAUGE MISC [Concomitant]
  8. ACYCLOVIR (ZOVIRAX) 200 MG CAPSULE [Concomitant]
  9. CALCIUM ACETATE (PHOSLO) 667 MG CAPSULE [Concomitant]
  10. DEXAMETHASONE (DECADRON) 4 MG TABLET [Concomitant]
  11. ENALAPRIL (VASOTEC) 2.5 MG TABLET [Concomitant]
  12. FILGRASTIM (NEUPOGEN) 300 MCG/ML SOLUTION [Concomitant]
  13. MAGNESIUM OXIDE (MAG-OX) 400 MG TABLET [Concomitant]
  14. MORPHINE IMMEDIATE RELEASE 30 MG TABLET [Concomitant]
  15. OMEPRAZOLE 40 MG ORAL CAPSULE [Concomitant]
  16. DEXAMETHASONE [Suspect]

REACTIONS (5)
  - Back pain [None]
  - Neck pain [None]
  - Abdominal pain [None]
  - Decreased appetite [None]
  - Bacterial sepsis [None]
